FAERS Safety Report 8934713 (Version 1)
Quarter: 2012Q4

REPORT INFORMATION
  Report Type: 
  Country: JM (occurrence: JM)
  Receive Date: 20121129
  Receipt Date: 20121129
  Transmission Date: 20130627
  Serious: Yes (Death)
  Sender: FDA-Public Use
  Company Number: JM-B.I. PHARMACEUTICALS,INC./RIDGEFIELD-2012-CN-02370CN

PATIENT
  Age: 93 Year
  Sex: Female

DRUGS (3)
  1. PRADAX [Suspect]
     Indication: CEREBROVASCULAR ACCIDENT PROPHYLAXIS
     Dosage: 220 mg
     Dates: start: 20120521
  2. PRADAX [Suspect]
     Indication: ATRIAL FIBRILLATION
  3. MEDICATION NOT FURTHER SPECIFIED [Concomitant]

REACTIONS (1)
  - Death [Fatal]
